FAERS Safety Report 10409924 (Version 1)
Quarter: 2014Q3

REPORT INFORMATION
  Report Type: Spontaneous
  Country: US (occurrence: None)
  Receive Date: 20140703
  Receipt Date: 20140703
  Transmission Date: 20150326
  Serious: Yes (Death)
  Sender: FDA-Public Use
  Company Number: AUR-APL-2014-06150

PATIENT
  Age: 19 Year
  Sex: Male

DRUGS (1)
  1. METFORMIN HYDROCHLORIDE. [Suspect]
     Active Substance: METFORMIN HYDROCHLORIDE
     Indication: PRODUCT USED FOR UNKNOWN INDICATION

REACTIONS (7)
  - Retching [None]
  - Heart rate increased [None]
  - Leukaemoid reaction [None]
  - Haemodialysis [None]
  - General physical health deterioration [None]
  - Overdose [None]
  - Lactic acidosis [None]
